FAERS Safety Report 10023736 (Version 1)
Quarter: 2014Q1

REPORT INFORMATION
  Report Type: Spontaneous
  Country: US (occurrence: None)
  Receive Date: 20140319
  Receipt Date: 20140319
  Transmission Date: 20141002
  Serious: Yes (Other)
  Sender: FDA-Public Use
  Company Number: None

PATIENT
  Age: 61 Year
  Sex: 0
  Weight: 68.04 kg

DRUGS (1)
  1. AZITHROMYCIN [Suspect]
     Indication: BRONCHITIS
     Dosage: 2 PILLS 1ST DAY, 1 PILL NEXT 4, DAILY 5 DAYS, TAKEN BY MOUTH
     Route: 048
     Dates: start: 20140314, end: 20140316

REACTIONS (6)
  - Migraine [None]
  - Anxiety [None]
  - Dizziness [None]
  - Decreased appetite [None]
  - Visual impairment [None]
  - Speech disorder [None]
